FAERS Safety Report 10245149 (Version 3)
Quarter: 2014Q4

REPORT INFORMATION
  Report Type: Spontaneous
  Country: US (occurrence: US)
  Receive Date: 20140618
  Receipt Date: 20141113
  Transmission Date: 20150528
  Serious: Yes (Hospitalization, Disabling, Other)
  Sender: FDA-Public Use
  Company Number: US-009507513-1406USA008484

PATIENT
  Sex: Female
  Weight: 79.37 kg

DRUGS (2)
  1. FOSAMAX [Suspect]
     Active Substance: ALENDRONATE SODIUM
     Indication: OSTEOPOROSIS
     Dosage: 70 MG , WEEKLY
     Route: 048
     Dates: start: 2001, end: 201205
  2. ALENDRONATE SODIUM. [Suspect]
     Active Substance: ALENDRONATE SODIUM
     Dosage: 70 MG, UNK
     Route: 048
     Dates: start: 20081119, end: 20120824

REACTIONS (22)
  - Haematocrit decreased [Recovered/Resolved]
  - Femur fracture [Unknown]
  - Vitamin D deficiency [Unknown]
  - Bursitis [Unknown]
  - Femur fracture [Recovering/Resolving]
  - Hypertension [Unknown]
  - Osteopenia [Unknown]
  - Fracture nonunion [Unknown]
  - Osteoarthritis [Unknown]
  - Increased tendency to bruise [Unknown]
  - Fracture treatment [Unknown]
  - Loose body in joint [Unknown]
  - Rash [Unknown]
  - Post lumbar puncture syndrome [Recovering/Resolving]
  - Tendon disorder [Unknown]
  - Vertebral osteophyte [Unknown]
  - Hysterectomy [Unknown]
  - Dyspnoea exertional [Unknown]
  - Intramedullary rod insertion [Unknown]
  - Renal failure [Unknown]
  - Normochromic normocytic anaemia [Unknown]
  - Bartholin^s cyst [Unknown]

NARRATIVE: CASE EVENT DATE: 201205
